FAERS Safety Report 20428890 (Version 2)
Quarter: 2022Q1

REPORT INFORMATION
  Report Type: Report from Study
  Country: US (occurrence: US)
  Receive Date: 20220204
  Receipt Date: 20220209
  Transmission Date: 20220423
  Serious: Yes (Hospitalization)
  Sender: FDA-Public Use
  Company Number: US-MYLANLABS-2022M1005987

PATIENT
  Sex: Male
  Weight: 62.5 kg

DRUGS (2)
  1. CLOZAPINE [Suspect]
     Active Substance: CLOZAPINE
     Indication: Schizophrenia
     Dosage: 2 DOSAGE FORM, AM (TAKEN 2 TABS IN THE MORNING)
     Route: 048
  2. CLOZAPINE [Suspect]
     Active Substance: CLOZAPINE
     Indication: Schizophrenia
     Dosage: 200 MILLIGRAM, PM (200MG TO BE TAKEN ON THE EVENING)
     Route: 049

REACTIONS (1)
  - Hospitalisation [Unknown]
